FAERS Safety Report 6874585-X (Version None)
Quarter: 2010Q3

REPORT INFORMATION
  Report Type: 
  Country: None (occurrence: None)
  Receive Date: 20100722
  Receipt Date: 20100706
  Transmission Date: 20110219
  Serious: Yes (Hospitalization)
  Sender: FDA-Public Use
  Company Number: 2010SP037679

PATIENT
  Age: 45 Year
  Sex: Female

DRUGS (1)
  1. CERAZETTE (DESOGESTREL / 00754001 / ) [Suspect]
     Indication: PRODUCT USED FOR UNKNOWN INDICATION

REACTIONS (1)
  - INTESTINAL OPERATION [None]
